FAERS Safety Report 6912021-5 (Version None)
Quarter: 2010Q3

REPORT INFORMATION
  Report Type: 
  Country: None (occurrence: None)
  Receive Date: 20100806
  Receipt Date: 20071113
  Transmission Date: 20110219
  Serious: Yes (Other)
  Sender: FDA-Public Use
  Company Number: US-PFIZER INC-2007096123

PATIENT
  Sex: Female
  Weight: 55.34 kg

DRUGS (10)
  1. DILANTIN-125 [Suspect]
     Indication: GRAND MAL CONVULSION
     Dates: start: 19980101
  2. DILANTIN [Suspect]
     Indication: GRAND MAL CONVULSION
     Dates: start: 20071111
  3. TOPAMAX [Concomitant]
  4. NEURONTIN [Concomitant]
  5. CLONAZEPAM [Concomitant]
  6. SUDAFED 12 HOUR [Concomitant]
  7. TENORMIN [Concomitant]
  8. LASIX [Concomitant]
  9. PROMETHAZINE [Concomitant]
  10. PRILOSEC [Concomitant]

REACTIONS (3)
  - CONVULSION [None]
  - DIARRHOEA [None]
  - INFLUENZA [None]
